FAERS Safety Report 9269473 (Version 2)
Quarter: 2014Q2

REPORT INFORMATION
  Report Type: Spontaneous
  Country: US (occurrence: US)
  Receive Date: 20130503
  Receipt Date: 20140414
  Transmission Date: 20141212
  Serious: Yes (Disabling, Other)
  Sender: FDA-Public Use
  Company Number: US-PFIZER INC-2013137821

PATIENT
  Age: 49 Year
  Sex: Female
  Weight: 63.49 kg

DRUGS (5)
  1. LYRICA [Suspect]
     Indication: FIBROMYALGIA
     Dosage: 75 MG, 2X/DAY
     Dates: start: 2002
  2. HYDROCODONE [Concomitant]
     Dosage: 7.5 MG, UNK
  3. IBUPROFEN [Concomitant]
     Dosage: 200 MG, UNK
  4. TRAMADOL [Concomitant]
     Dosage: 50MG OR 100MG , 6X/DAY
  5. TIZANIDINE [Concomitant]
     Dosage: 4 MG, ONCE A DAY

REACTIONS (2)
  - Intervertebral disc disorder [Unknown]
  - Intervertebral disc degeneration [Unknown]
